FAERS Safety Report 5110842-5 (Version None)
Quarter: 2006Q3

REPORT INFORMATION
  Report Type: 
  Country: None (occurrence: None)
  Receive Date: 20060919
  Receipt Date: 20060907
  Transmission Date: 20061208
  Serious: Yes (Hospitalization)
  Sender: FDA-Public Use
  Company Number: 2006109237

PATIENT
  Age: 66 Year
  Sex: Female
  Weight: 90.7194 kg

DRUGS (10)
  1. NORVASC [Suspect]
     Indication: HYPERTENSION
     Dosage: 10 MG (10 MG, QD)
  2. TRAZODONE HCL [Concomitant]
  3. LEVOTHYROXINE SODIUM [Concomitant]
  4. PAXIL [Concomitant]
  5. PREMARIN [Concomitant]
  6. KLOR-CON [Concomitant]
  7. PROTONIX [Concomitant]
  8. VITAMINS (VITAMINS) [Concomitant]
  9. CALCIUM (CALCIUM) [Concomitant]
  10. GLUCOSAMINE SULFATE (GLUCOSAMINE SULFATE) [Concomitant]

REACTIONS (3)
  - EXOSTOSIS [None]
  - OEDEMA PERIPHERAL [None]
  - SPINAL FUSION SURGERY [None]
